FAERS Safety Report 6152497-7 (Version None)
Quarter: 2009Q2

REPORT INFORMATION
  Report Type: 
  Country: None (occurrence: None)
  Receive Date: 20090413
  Receipt Date: 20090403
  Transmission Date: 20091009
  Serious: Yes (Other)
  Sender: FDA-Public Use
  Company Number: PHEH2006US15238

PATIENT
  Sex: Male

DRUGS (5)
  1. AREDIA [Suspect]
  2. ZOMETA [Suspect]
  3. REVLIMID [Concomitant]
  4. DEXAMETHASONE 4MG TAB [Concomitant]
  5. VELCADE [Concomitant]

REACTIONS (9)
  - ANAEMIA [None]
  - ANXIETY [None]
  - BLOOD GLUCOSE FLUCTUATION [None]
  - DECREASED INTEREST [None]
  - GASTROINTESTINAL HAEMORRHAGE [None]
  - GENERAL PHYSICAL HEALTH DETERIORATION [None]
  - OSTEONECROSIS [None]
  - PAIN [None]
  - PANCYTOPENIA [None]
